FAERS Safety Report 4350106-0 (Version None)
Quarter: 2004Q2

REPORT INFORMATION
  Report Type: 
  Country: None (occurrence: None)
  Receive Date: 20040429
  Receipt Date: 20040419
  Transmission Date: 20050107
  Serious: Yes (Life-Threatening)
  Sender: FDA-Public Use
  Company Number: GB-GLAXOSMITHKLINE-B0330470A

PATIENT
  Age: 34 Year
  Sex: Male

DRUGS (7)
  1. BECOTIDE [Suspect]
     Indication: ASTHMA
     Dosage: 4PUFF TWICE PER DAY
     Route: 055
     Dates: start: 19970101
  2. METFORMIN HCL [Concomitant]
     Indication: DIABETES MELLITUS
     Dosage: 500MG THREE TIMES PER DAY
     Route: 048
     Dates: start: 20010101
  3. ALBUTEROL SULFATE [Concomitant]
     Dosage: 2PUFF FOUR TIMES PER DAY
     Route: 055
     Dates: start: 19990101
  4. GLICLAZIDE [Concomitant]
     Dosage: 80MG PER DAY
  5. HYDROCORTISONE [Concomitant]
     Dosage: 2MG THREE TIMES PER DAY
  6. SIMVASTATIN [Concomitant]
     Dosage: 40MG PER DAY
  7. CO-DYDRAMOL [Concomitant]

REACTIONS (2)
  - ADRENAL SUPPRESSION [None]
  - CUSHINGOID [None]
